FAERS Safety Report 9256104 (Version 3)
Quarter: 2013Q3

REPORT INFORMATION
  Report Type: Spontaneous
  Country: IL (occurrence: IL)
  Receive Date: 20130425
  Receipt Date: 20130807
  Transmission Date: 20140515
  Serious: Yes (Hospitalization, Other)
  Sender: FDA-Public Use
  Company Number: IL-ABBOTT-13P-082-1079703-00

PATIENT
  Sex: Female

DRUGS (4)
  1. HUMIRA [Suspect]
     Indication: CROHN^S DISEASE
     Route: 058
     Dates: start: 20130211
  2. HUMIRA [Suspect]
  3. IRON [Concomitant]
     Indication: PRODUCT USED FOR UNKNOWN INDICATION
  4. VITAMINS NOS [Concomitant]

REACTIONS (8)
  - Abdominal distension [Unknown]
  - Abdominal pain [Unknown]
  - Crohn^s disease [Recovering/Resolving]
  - Burning sensation [Recovered/Resolved]
  - Hyperaesthesia [Recovered/Resolved]
  - Pain [Recovered/Resolved]
  - Hospitalisation [Unknown]
  - Weight decreased [Unknown]
